FAERS Safety Report 22146109 (Version 1)
Quarter: 2023Q1

REPORT INFORMATION
  Report Type: Report from Study
  Country: AE (occurrence: None)
  Receive Date: 20230328
  Receipt Date: 20230328
  Transmission Date: 20230418
  Serious: Yes (Hospitalization)
  Sender: FDA-Public Use
  Company Number: 2023A067099

PATIENT
  Age: 16146 Day
  Sex: Female
  Weight: 111 kg

DRUGS (2)
  1. EVUSHELD [Suspect]
     Active Substance: CILGAVIMAB\TIXAGEVIMAB
     Indication: COVID-19 prophylaxis
     Dosage: 3.0ML ONCE/SINGLE ADMINISTRATION
     Route: 030
     Dates: start: 20220713, end: 20220713
  2. EVUSHELD [Suspect]
     Active Substance: CILGAVIMAB\TIXAGEVIMAB
     Indication: COVID-19 prophylaxis
     Dosage: 3.0ML ONCE/SINGLE ADMINISTRATION
     Route: 030
     Dates: start: 20220921, end: 20220921

REACTIONS (1)
  - Anuria [Recovered/Resolved]

NARRATIVE: CASE EVENT DATE: 20221110
